FAERS Safety Report 10228548 (Version 1)
Quarter: 2014Q2

REPORT INFORMATION
  Report Type: Spontaneous
  Country: US (occurrence: None)
  Receive Date: 20140502
  Receipt Date: 20140502
  Transmission Date: 20141212
  Serious: Yes (Other)
  Sender: FDA-Public Use
  Company Number: 2014-US-001029

PATIENT
  Age: 9 Year
  Sex: Male

DRUGS (3)
  1. ERWINAZE [Suspect]
     Indication: ACUTE LYMPHOCYTIC LEUKAEMIA
     Route: 030
  2. DEXAMETHASONE (DEXAMETHASONE PHOSPHATE) [Concomitant]
  3. PEPCID (FAMOTIDINE) [Concomitant]

REACTIONS (2)
  - Hypersensitivity [None]
  - Rash generalised [None]
